FAERS Safety Report 5744250-0 (Version None)
Quarter: 2008Q2

REPORT INFORMATION
  Report Type: 
  Country: None (occurrence: None)
  Receive Date: 20080516
  Receipt Date: 20080516
  Transmission Date: 20081010
  Serious: Yes (Hospitalization)
  Sender: FDA-Public Use
  Company Number: None

PATIENT
  Age: 86 Year
  Sex: Female
  Weight: 65.7716 kg

DRUGS (2)
  1. INVANZ [Suspect]
     Indication: ACTINOMYCOSIS
     Dosage: 1GM DAILY IV DRIP
     Route: 041
     Dates: start: 20080501, end: 20080508
  2. INVANZ [Suspect]
     Indication: SECRETION DISCHARGE
     Dosage: 1GM DAILY IV DRIP
     Route: 041
     Dates: start: 20080501, end: 20080508

REACTIONS (5)
  - ARTHRITIS [None]
  - ARTHROPATHY [None]
  - ASTHENIA [None]
  - GAIT DISTURBANCE [None]
  - OEDEMA PERIPHERAL [None]
